FAERS Safety Report 5096611-3 (Version None)
Quarter: 2006Q3

REPORT INFORMATION
  Report Type: 
  Country: None (occurrence: None)
  Receive Date: 20060830
  Receipt Date: 20060818
  Transmission Date: 20061208
  Serious: Yes (Other)
  Sender: FDA-Public Use
  Company Number: 2006102956

PATIENT
  Sex: Female

DRUGS (1)
  1. HALCION [Suspect]
     Indication: INSOMNIA
     Dosage: ORAL
     Route: 048

REACTIONS (3)
  - DEMENTIA [None]
  - DRUG DEPENDENCE [None]
  - MEDICATION ERROR [None]
